FAERS Safety Report 5804495-8 (Version None)
Quarter: 2008Q3

REPORT INFORMATION
  Report Type: 
  Country: None (occurrence: None)
  Receive Date: 20080709
  Receipt Date: 20080628
  Transmission Date: 20090109
  Serious: Yes (Life-Threatening, Hospitalization)
  Sender: FDA-Public Use
  Company Number: B0528075A

PATIENT
  Age: 64 Year
  Sex: Female
  Weight: 63 kg

DRUGS (2)
  1. ZOPHREN [Suspect]
     Indication: CHEMOTHERAPY
     Dosage: 8MG SINGLE DOSE
     Route: 042
     Dates: start: 20080522, end: 20080522
  2. SOLU-MEDROL [Concomitant]
     Indication: CHEMOTHERAPY
     Route: 065
     Dates: start: 20080522, end: 20080522

REACTIONS (13)
  - ABDOMINAL PAIN [None]
  - ANAPHYLACTIC SHOCK [None]
  - CYANOSIS [None]
  - GASTROINTESTINAL HYPERMOTILITY [None]
  - HYPOTENSION [None]
  - NAUSEA [None]
  - OXYGEN SATURATION DECREASED [None]
  - PAINFUL RESPIRATION [None]
  - PARAESTHESIA [None]
  - PRURITUS [None]
  - RASH [None]
  - TACHYCARDIA [None]
  - URTICARIA [None]
